FAERS Safety Report 13942759 (Version 2)
Quarter: 2018Q2

REPORT INFORMATION
  Report Type: Report from Study
  Country: US (occurrence: US)
  Receive Date: 20170906
  Receipt Date: 20180516
  Transmission Date: 20180711
  Serious: Yes (Hospitalization)
  Sender: FDA-Public Use
  Company Number: US-ACTELION-A-US2017-158958

PATIENT
  Age: 79 Year
  Sex: Male
  Weight: 99.77 kg

DRUGS (1)
  1. OPSUMIT [Suspect]
     Active Substance: MACITENTAN
     Indication: PULMONARY ARTERIAL HYPERTENSION
     Dosage: 10 MG, QD
     Route: 048

REACTIONS (4)
  - Nasopharyngitis [Unknown]
  - Influenza [Not Recovered/Not Resolved]
  - Spinal operation [Unknown]
  - Retinopexy [Unknown]

NARRATIVE: CASE EVENT DATE: 201708
